FAERS Safety Report 6936718-6 (Version None)
Quarter: 2010Q3

REPORT INFORMATION
  Report Type: 
  Country: None (occurrence: None)
  Receive Date: 20100818
  Receipt Date: 20100802
  Transmission Date: 20110219
  Serious: Yes (Other)
  Sender: FDA-Public Use
  Company Number: 2010003211

PATIENT
  Age: 71 Year
  Sex: Female

DRUGS (1)
  1. ERLOTINIB (ERLOTINIB) (ERLOTINIB) [Suspect]
     Indication: ADENOCARCINOMA

REACTIONS (3)
  - DISEASE PROGRESSION [None]
  - GASTROINTESTINAL TOXICITY [None]
  - RASH [None]
